FAERS Safety Report 9879390 (Version 2)
Quarter: 2014Q2

REPORT INFORMATION
  Report Type: Report from Study
  Country: AU (occurrence: AU)
  Receive Date: 20140206
  Receipt Date: 20140402
  Transmission Date: 20141212
  Serious: Yes (Death, Hospitalization)
  Sender: FDA-Public Use
  Company Number: PHHY2014AU014805

PATIENT
  Age: 72 Year
  Sex: Male

DRUGS (3)
  1. ACLASTA [Suspect]
     Dosage: 5 MG, UNK
     Route: 042
     Dates: start: 20130219
  2. FLOMAXTRA [Concomitant]
     Indication: HYPERTENSION
     Dosage: 100 MG, QD
  3. NEXIUM//ESOMEPRAZOLE MAGNESIUM [Concomitant]
     Indication: DYSPEPSIA
     Dosage: 20 MG, QD

REACTIONS (3)
  - Malignant ascites [Fatal]
  - Abdominal discomfort [Fatal]
  - Weight decreased [Fatal]
